FAERS Safety Report 17866679 (Version 3)
Quarter: 2020Q2

REPORT INFORMATION
  Report Type: Spontaneous
  Country: US (occurrence: US)
  Receive Date: 20200605
  Receipt Date: 20200616
  Transmission Date: 20200714
  Serious: No
  Sender: FDA-Public Use
  Company Number: US-SA-2020SA141877

PATIENT

DRUGS (2)
  1. LANTUS [Suspect]
     Active Substance: INSULIN GLARGINE
     Indication: TYPE 2 DIABETES MELLITUS
     Dosage: 64 IU IN THE MORNING AND  34 IU IN THE EVENING
  2. LANTUS [Suspect]
     Active Substance: INSULIN GLARGINE
     Dosage: 64 IU IN THE MORNING AND  28 IU IN THE EVENING
     Dates: start: 2009

REACTIONS (3)
  - Blood glucose abnormal [Unknown]
  - Blood glucose increased [Unknown]
  - Inappropriate schedule of product administration [Unknown]

NARRATIVE: CASE EVENT DATE: 2009
